FAERS Safety Report 23299372 (Version 3)
Quarter: 2024Q1

REPORT INFORMATION
  Report Type: Report from Study
  Country: CH (occurrence: CH)
  Receive Date: 20231215
  Receipt Date: 20240203
  Transmission Date: 20240410
  Serious: Yes (Other)
  Sender: FDA-Public Use
  Company Number: CH-ABBVIE-5535927

PATIENT
  Age: 80 Year
  Sex: Male

DRUGS (6)
  1. CARBIDOPA\LEVODOPA [Suspect]
     Active Substance: CARBIDOPA\LEVODOPA
     Indication: Parkinson^s disease
     Dosage: LAST ADMIN DATE 2023? FREQUENCY TEXT: 24H THERAPY
     Route: 050
     Dates: start: 20230223
  2. CARBIDOPA\LEVODOPA [Suspect]
     Active Substance: CARBIDOPA\LEVODOPA
     Dosage: MD: 9.0ML, CRD: 4.5 ML/H, ED: 1.0 ML, CRN: 2.6ML/H.?24H THERAPY
     Route: 050
     Dates: start: 20230519, end: 20230621
  3. CARBIDOPA\LEVODOPA [Suspect]
     Active Substance: CARBIDOPA\LEVODOPA
     Dosage: MD: 9.0ML, CRD: 5.1 ML/H, ED: 1.0 ML, CRN: 2.7ML/H.?24H THERAPY
     Route: 050
     Dates: start: 20230904, end: 20231107
  4. CARBIDOPA\LEVODOPA [Suspect]
     Active Substance: CARBIDOPA\LEVODOPA
     Dosage: MD: 9.0ML, CRD: 5.3 ML/H, ED: 1.0 ML, CRN: 2.7ML/H?24H THERAPY
     Route: 050
     Dates: start: 20231107, end: 20231212
  5. CARBIDOPA\LEVODOPA [Suspect]
     Active Substance: CARBIDOPA\LEVODOPA
     Dosage: MD: 9.0ML, CRD: 4.6 ML/H, ED: 1.0 ML, CRN: 2.7ML/H.?24H THERAPY
     Route: 050
     Dates: start: 20230621, end: 20230904
  6. CARBIDOPA\LEVODOPA [Suspect]
     Active Substance: CARBIDOPA\LEVODOPA
     Dosage: MD: 9.0ML, CRD: 5.3 ML/H, ED: 1.0 ML, CRN: 2.7ML/H
     Route: 050
     Dates: start: 20231212

REACTIONS (8)
  - Acute abdomen [Recovered/Resolved]
  - Faecaloma [Recovered/Resolved]
  - Constipation [Recovering/Resolving]
  - Discomfort [Recovered/Resolved]
  - Proctitis [Recovering/Resolving]
  - Abdominal pain [Recovered/Resolved]
  - Device dislocation [Recovered/Resolved]
  - Off label use [Recovered/Resolved]

NARRATIVE: CASE EVENT DATE: 20230801
